FAERS Safety Report 24785060 (Version 1)
Quarter: 2024Q4

REPORT INFORMATION
  Report Type: Spontaneous
  Country: US (occurrence: US)
  Receive Date: 20241228
  Receipt Date: 20241228
  Transmission Date: 20250115
  Serious: Yes (Hospitalization)
  Sender: CHIESI
  Company Number: US-CHIESI-2024CHF08316

PATIENT
  Sex: Male

DRUGS (1)
  1. MYALEPT [Suspect]
     Active Substance: METRELEPTIN
     Indication: Product used for unknown indication
     Dosage: UNK

REACTIONS (6)
  - Adrenal neoplasm [Unknown]
  - Thyroid neoplasm [Unknown]
  - Infection [Unknown]
  - Osteoporosis [Unknown]
  - Cellulitis [Unknown]
  - Corneal abrasion [Unknown]
